FAERS Safety Report 24212088 (Version 1)
Quarter: 2024Q3

REPORT INFORMATION
  Report Type: Spontaneous
  Country: DE (occurrence: DE)
  Receive Date: 20240815
  Receipt Date: 20240815
  Transmission Date: 20241016
  Serious: Yes (Hospitalization, Other)
  Sender: BOEHRINGER INGELHEIM
  Company Number: DE-BoehringerIngelheim-2024-BI-041137

PATIENT
  Age: 68 Year
  Sex: Female
  Weight: 53 kg

DRUGS (7)
  1. JARDIANCE [Suspect]
     Active Substance: EMPAGLIFLOZIN
     Indication: Cardiac failure
     Dosage: MORNING
     Route: 048
     Dates: start: 20230114
  2. ENTRESTO [Concomitant]
     Active Substance: SACUBITRIL\VALSARTAN
     Indication: Product used for unknown indication
  3. NEBIVOLOL [Concomitant]
     Active Substance: NEBIVOLOL
     Indication: Product used for unknown indication
  4. ASPIRIN [Concomitant]
     Active Substance: ASPIRIN
     Indication: Product used for unknown indication
  5. ROSUVASTATIN [Concomitant]
     Active Substance: ROSUVASTATIN\ROSUVASTATIN CALCIUM
     Indication: Product used for unknown indication
  6. LEVOTHYROXINE SODIUM [Concomitant]
     Active Substance: LEVOTHYROXINE SODIUM
     Indication: Product used for unknown indication
  7. CHOLECALCIFEROL [Concomitant]
     Active Substance: CHOLECALCIFEROL
     Indication: Product used for unknown indication

REACTIONS (15)
  - Blood pressure decreased [Recovered/Resolved]
  - Syncope [Recovered/Resolved]
  - Brain contusion [Unknown]
  - Weight decreased [Not Recovered/Not Resolved]
  - Nasopharyngitis [Unknown]
  - Fall [Recovered/Resolved]
  - Contusion [Recovered/Resolved]
  - Back pain [Recovered/Resolved]
  - Hyperhidrosis [Not Recovered/Not Resolved]
  - Tremor [Not Recovered/Not Resolved]
  - Constipation [Not Recovered/Not Resolved]
  - Parosmia [Not Recovered/Not Resolved]
  - Taste disorder [Not Recovered/Not Resolved]
  - Blood pressure decreased [Unknown]
  - Back pain [Unknown]

NARRATIVE: CASE EVENT DATE: 20230101
